FAERS Safety Report 7633892-3 (Version None)
Quarter: 2011Q3

REPORT INFORMATION
  Report Type: 
  Country: None (occurrence: None)
  Receive Date: 20110725
  Receipt Date: 20110713
  Transmission Date: 20111222
  Serious: Yes (Other)
  Sender: FDA-Public Use
  Company Number: PHFR2010GB02075

PATIENT
  Sex: Female

DRUGS (8)
  1. AMISULPRIDE [Suspect]
     Indication: SCHIZOPHRENIA
     Dosage: 200 MG, UNK
     Route: 048
     Dates: end: 20100801
  2. CLOZAPINE [Suspect]
     Dosage: UNK
     Route: 048
     Dates: start: 20050207
  3. AMISULPRIDE [Suspect]
     Dosage: UNK
     Route: 048
  4. TEMAZEPAM [Concomitant]
     Indication: INSOMNIA
     Dosage: 10 MG, UNK
     Route: 048
  5. CLOZAPINE [Suspect]
     Indication: SCHIZOPHRENIA
     Dosage: 600 MG, UNK
     Route: 048
     Dates: start: 20030101, end: 20041001
  6. LAMOTRIGINE [Suspect]
     Dosage: 50 MG, UNK
     Dates: end: 20100801
  7. PAROXETINE HCL [Concomitant]
     Indication: DEPRESSION
     Dosage: 30 MG, UNK
     Route: 048
  8. RAMIPRIL [Concomitant]
     Indication: HYPERTENSION
     Dosage: 10 MG, UNK
     Route: 048

REACTIONS (8)
  - MENTAL IMPAIRMENT [None]
  - BREAST CANCER [None]
  - ABSCESS [None]
  - WHITE BLOOD CELL COUNT INCREASED [None]
  - NEUTROPHIL COUNT INCREASED [None]
  - BREAST ABSCESS [None]
  - METASTASES TO SPINE [None]
  - PLATELET COUNT DECREASED [None]
